FAERS Safety Report 8771863 (Version 2)
Quarter: 2012Q4

REPORT INFORMATION
  Report Type: 
  Country: US (occurrence: US)
  Receive Date: 20120906
  Receipt Date: 20120928
  Transmission Date: 20130627
  Serious: Yes (Life-Threatening, Hospitalization)
  Sender: FDA-Public Use
  Company Number: US-009507513-1209USA001035

PATIENT

DRUGS (5)
  1. VICTRELIS [Suspect]
     Indication: HEPATITIS C
     Dosage: 800 mg, Once
     Route: 048
     Dates: start: 20120824, end: 20120829
  2. PEGINTRON [Concomitant]
  3. REBETOL [Concomitant]
  4. NADOLOL [Concomitant]
  5. ALDACTONE INJECTION [Concomitant]

REACTIONS (4)
  - Peritonitis bacterial [Recovering/Resolving]
  - Colitis [Recovering/Resolving]
  - Abdominal pain [Recovering/Resolving]
  - Ileus [Recovering/Resolving]
